FAERS Safety Report 13506920 (Version 2)
Quarter: 2018Q2

REPORT INFORMATION
  Report Type: Spontaneous
  Country: US (occurrence: US)
  Receive Date: 20170502
  Receipt Date: 20180430
  Transmission Date: 20180711
  Serious: No
  Sender: FDA-Public Use
  Company Number: US-BAUSCH-BL-2017-002211

PATIENT
  Age: 62 Year
  Sex: Female

DRUGS (2)
  1. ALREX [Suspect]
     Active Substance: LOTEPREDNOL ETABONATE
     Indication: PRODUCT USED FOR UNKNOWN INDICATION
     Dosage: 1 DROP OU QID
     Route: 047
  2. ALREX [Suspect]
     Active Substance: LOTEPREDNOL ETABONATE
     Dosage: MORNING AND EVENING
     Route: 047
     Dates: start: 20170120

REACTIONS (2)
  - Eye irritation [Recovered/Resolved]
  - Product odour abnormal [Unknown]

NARRATIVE: CASE EVENT DATE: 20170120
